FAERS Safety Report 5290507-X (Version None)
Quarter: 2007Q2

REPORT INFORMATION
  Report Type: 
  Country: None (occurrence: None)
  Receive Date: 20070404
  Receipt Date: 20070404
  Transmission Date: 20071010
  Serious: No
  Sender: FDA-Public Use
  Company Number: None

PATIENT

DRUGS (3)
  1. METHADONE HYDROCHLORIDE [Suspect]
     Dosage: TABLET  BOTTLE
  2. PREDNISONE TAB [Suspect]
     Dosage: TABLET  BOTTLE 100 TABS
  3. MELOXICAM [Suspect]
     Dosage: TABLET  BOTTLE 100 TABS

REACTIONS (2)
  - CIRCUMSTANCE OR INFORMATION CAPABLE OF LEADING TO MEDICATION ERROR [None]
  - MEDICATION ERROR [None]
